FAERS Safety Report 7674517-0 (Version None)
Quarter: 2011Q3

REPORT INFORMATION
  Report Type: 
  Country: None (occurrence: None)
  Receive Date: 20110810
  Receipt Date: 20110729
  Transmission Date: 20111222
  Serious: Yes (Hospitalization, Other)
  Sender: FDA-Public Use
  Company Number: PHHY2011KR53172

PATIENT
  Sex: Male

DRUGS (1)
  1. GLEEVEC [Suspect]
     Indication: GASTROINTESTINAL STROMAL TUMOUR
     Dosage: 400 MG, DAILY
     Route: 048
     Dates: start: 20101008

REACTIONS (8)
  - FACE OEDEMA [None]
  - PROSTATIC SPECIFIC ANTIGEN INCREASED [None]
  - EYE OEDEMA [None]
  - PROSTATE CANCER [None]
  - OEDEMA [None]
  - PLEURAL EFFUSION [None]
  - MICTURITION DISORDER [None]
  - FEELING ABNORMAL [None]
